FAERS Safety Report 8461787-4 (Version None)
Quarter: 2012Q2

REPORT INFORMATION
  Report Type: 
  Country: None (occurrence: None)
  Receive Date: 20120625
  Receipt Date: 20120615
  Transmission Date: 20120825
  Serious: Yes (Hospitalization)
  Sender: FDA-Public Use
  Company Number: US-BAYER-2012-015872

PATIENT
  Age: 18 Year
  Sex: Female
  Weight: 61.224 kg

DRUGS (7)
  1. DROSPIRENONE AND ETHINYL ESTRADIOL [Suspect]
     Indication: CONTRACEPTION
     Dosage: UNK
     Dates: start: 20090201, end: 20100201
  2. ALBUTEROL [Concomitant]
     Dosage: UNK
     Route: 045
     Dates: start: 20100818
  3. AUGMENTIN '125' [Concomitant]
     Dosage: 875 MG, UNK
     Route: 048
     Dates: start: 20100818
  4. SUDAFED 12 HOUR [Concomitant]
     Dosage: UNK
     Dates: start: 20100818
  5. ZOLOFT [Concomitant]
     Indication: ANXIETY
     Dosage: UNK
     Route: 048
     Dates: start: 20100818
  6. NYQUIL [Concomitant]
     Dosage: UNK
     Route: 048
     Dates: start: 20100818
  7. IBUPROFEN [Concomitant]
     Dosage: UNK
     Dates: start: 20100818

REACTIONS (11)
  - CHOLELITHIASIS [None]
  - ABDOMINAL PAIN [None]
  - VOMITING [None]
  - GASTROOESOPHAGEAL REFLUX DISEASE [None]
  - PROCEDURAL PAIN [None]
  - PROCEDURAL NAUSEA [None]
  - CHEST PAIN [None]
  - MALAISE [None]
  - EMOTIONAL DISTRESS [None]
  - DIARRHOEA [None]
  - FRUSTRATION [None]
